FAERS Safety Report 23830057 (Version 1)
Quarter: 2024Q2

REPORT INFORMATION
  Report Type: Other
  Country: CN (occurrence: CN)
  Receive Date: 20240508
  Receipt Date: 20240508
  Transmission Date: 20240716
  Serious: Yes (Death, Other)
  Sender: FDA-Public Use
  Company Number: CN-Caplin Steriles Limited-2156693

PATIENT
  Age: 47 Year
  Sex: Male
  Weight: 65 kg

DRUGS (1)
  1. ETOMIDATE [Suspect]
     Active Substance: ETOMIDATE
     Indication: Product used for unknown indication
     Route: 048

REACTIONS (5)
  - Poisoning [Fatal]
  - Blood corticotrophin abnormal [Fatal]
  - Hyperaemia [Fatal]
  - Oedema [Fatal]
  - Pulmonary congestion [Fatal]
